FAERS Safety Report 13276983 (Version 1)
Quarter: 2017Q1

REPORT INFORMATION
  Report Type: Spontaneous
  Country: US (occurrence: US)
  Receive Date: 20170227
  Receipt Date: 20170227
  Transmission Date: 20170428
  Serious: No
  Sender: FDA-Public Use
  Company Number: None

PATIENT
  Age: 65 Year
  Sex: Female

DRUGS (1)
  1. LETAIRIS [Suspect]
     Active Substance: AMBRISENTAN
     Indication: PULMONARY ARTERIAL HYPERTENSION
     Route: 048
     Dates: start: 20170210, end: 20170226

REACTIONS (5)
  - Orthopnoea [None]
  - Weight increased [None]
  - Oedema peripheral [None]
  - Nasal congestion [None]
  - Dyspnoea exertional [None]

NARRATIVE: CASE EVENT DATE: 20170220
